FAERS Safety Report 5010824-8 (Version None)
Quarter: 2006Q2

REPORT INFORMATION
  Report Type: 
  Country: None (occurrence: None)
  Receive Date: 20060525
  Receipt Date: 20060518
  Transmission Date: 20061013
  Serious: Yes (Other)
  Sender: FDA-Public Use
  Company Number: US-JNJFOC-20060504357

PATIENT
  Sex: Female

DRUGS (2)
  1. REMICADE [Suspect]
     Indication: FIBROMYALGIA
     Route: 042
  2. REMICADE [Suspect]
     Indication: SARCOIDOSIS
     Route: 042

REACTIONS (10)
  - ARTHRALGIA [None]
  - CONTUSION [None]
  - DIZZINESS [None]
  - FATIGUE [None]
  - HEART RATE IRREGULAR [None]
  - MICTURITION DISORDER [None]
  - MYALGIA [None]
  - NASOPHARYNGITIS [None]
  - PARAESTHESIA [None]
  - PRURITUS [None]
